FAERS Safety Report 24237081 (Version 1)
Quarter: 2024Q3

REPORT INFORMATION
  Report Type: Report from Study
  Country: US (occurrence: US)
  Receive Date: 20240822
  Receipt Date: 20240822
  Transmission Date: 20241016
  Serious: No
  Sender: ROCHE
  Company Number: US-ROCHE-10000059813

PATIENT
  Age: 52 Year
  Sex: Female

DRUGS (1)
  1. OCREVUS [Suspect]
     Active Substance: OCRELIZUMAB
     Indication: Relapsing multiple sclerosis
     Dosage: DATE OF TREATMENT: 21/JUN/2024, 22/DEC/2023, 06/JUN/2023, 05/MAY/2023
     Route: 065
     Dates: start: 20230505

REACTIONS (3)
  - COVID-19 [Recovered/Resolved]
  - Dysphagia [Not Recovered/Not Resolved]
  - Salivary hypersecretion [Not Recovered/Not Resolved]

NARRATIVE: CASE EVENT DATE: 20240805
